FAERS Safety Report 23608690 (Version 1)
Quarter: 2024Q1

REPORT INFORMATION
  Report Type: Spontaneous
  Country: DK (occurrence: DK)
  Receive Date: 20240308
  Receipt Date: 20240308
  Transmission Date: 20240410
  Serious: Yes (Other)
  Sender: FDA-Public Use
  Company Number: None

PATIENT
  Age: 64 Year
  Sex: Female
  Weight: 104 kg

DRUGS (4)
  1. WEGOVY [Suspect]
     Active Substance: SEMAGLUTIDE
     Indication: Overweight
     Dosage: DOSAGE: UNKNOWN DOSE ONCE A WEEK, STRENGTH: UNKNOWN
     Dates: start: 202302, end: 202307
  2. LOSARTAN [Concomitant]
     Active Substance: LOSARTAN
     Indication: Hypertension
     Dosage: STRENGTH: UNKNOWN
     Dates: start: 20150101
  3. DULOXETINE [Concomitant]
     Active Substance: DULOXETINE
     Indication: Depression
     Dosage: 60 MG, QD
     Dates: start: 19930101
  4. METOPROLOL SUCCINATE [Concomitant]
     Active Substance: METOPROLOL SUCCINATE
     Indication: Tachycardia
     Dosage: 25 MG, QD
     Dates: start: 20210101

REACTIONS (3)
  - Depression [Recovered/Resolved]
  - Gastrointestinal disorder [Recovering/Resolving]
  - Suicidal ideation [Recovered/Resolved]

NARRATIVE: CASE EVENT DATE: 20230101
